FAERS Safety Report 4916484-6 (Version None)
Quarter: 2006Q1

REPORT INFORMATION
  Report Type: 
  Country: None (occurrence: None)
  Receive Date: 20060220
  Receipt Date: 20041117
  Transmission Date: 20060701
  Serious: Yes (Hospitalization)
  Sender: FDA-Public Use
  Company Number: 2004-11-0297

PATIENT
  Age: 26 Year
  Sex: Female

DRUGS (2)
  1. BUPRENORPHINE HCL [Suspect]
     Indication: DRUG USE FOR UNKNOWN INDICATION
     Dosage: DOSAGE UNKNOWN
     Route: 065
     Dates: end: 20030530
  2. HEROIN [Suspect]
     Indication: DRUG USE FOR UNKNOWN INDICATION
     Dosage: DOSAGE UNKNOWN
     Route: 042

REACTIONS (11)
  - ANAEMIA [None]
  - BILIRUBIN CONJUGATED INCREASED [None]
  - C-REACTIVE PROTEIN INCREASED [None]
  - CARDIAC TAMPONADE [None]
  - CREPITATIONS [None]
  - DYSPNOEA [None]
  - ENDOCARDITIS STAPHYLOCOCCAL [None]
  - EXTRAVASATION [None]
  - INTENTIONAL DRUG MISUSE [None]
  - SHOCK [None]
  - THROMBOCYTOPENIA [None]
